FAERS Safety Report 9767920 (Version 8)
Quarter: 2014Q4

REPORT INFORMATION
  Report Type: Report from Study
  Country: TH (occurrence: TH)
  Receive Date: 20131217
  Receipt Date: 20141029
  Transmission Date: 20150529
  Serious: Yes (Life-Threatening, Hospitalization, Other)
  Sender: FDA-Public Use
  Company Number: PHHO2013TH015887

PATIENT
  Age: 72 Year
  Sex: Female
  Weight: 42 kg

DRUGS (5)
  1. ONSIA [Concomitant]
     Indication: VOMITING
     Dosage: 4 MG, PM
     Dates: start: 20131113, end: 20131203
  2. AREDIA [Concomitant]
     Active Substance: PAMIDRONATE DISODIUM
     Indication: METASTASES TO BONE
     Dosage: 90 MG, UNK
     Route: 042
     Dates: start: 20120227, end: 20131008
  3. AFINITOR [Suspect]
     Active Substance: EVEROLIMUS
     Indication: BREAST CANCER METASTATIC
     Dosage: 10 MG, QD
     Route: 048
     Dates: start: 20131024, end: 20131203
  4. FERROUS SULFATE [Concomitant]
     Active Substance: FERROUS SULFATE\FERROUS SULFATE, DRIED
     Indication: VITAMIN SUPPLEMENTATION
     Dosage: 1 DF, TID
     Route: 048
     Dates: start: 20131113, end: 20131204
  5. PERIACTIN [Concomitant]
     Active Substance: CYPROHEPTADINE HYDROCHLORIDE
     Indication: FATIGUE
     Dosage: 4 MG, HS
     Route: 048
     Dates: start: 20131113, end: 20131204

REACTIONS (6)
  - Electrolyte imbalance [Recovered/Resolved with Sequelae]
  - Stomatitis [Recovered/Resolved]
  - Dyspnoea [Recovering/Resolving]
  - Acute kidney injury [Recovered/Resolved with Sequelae]
  - Anaemia [Recovered/Resolved with Sequelae]
  - Cardiac failure congestive [Recovered/Resolved]

NARRATIVE: CASE EVENT DATE: 20131126
